FAERS Safety Report 11610980 (Version 2)
Quarter: 2016Q1

REPORT INFORMATION
  Report Type: Spontaneous
  Country: JP (occurrence: JP)
  Receive Date: 20151008
  Receipt Date: 20160223
  Transmission Date: 20160525
  Serious: Yes (Other)
  Sender: FDA-Public Use
  Company Number: JP-JNJFOC-20151000673

PATIENT
  Sex: Male

DRUGS (1)
  1. ZYTIGA [Suspect]
     Active Substance: ABIRATERONE ACETATE
     Indication: PROSTATE CANCER
     Route: 048

REACTIONS (4)
  - Hyperglycaemia [Unknown]
  - Prostatic specific antigen increased [Unknown]
  - Hepatic function abnormal [Unknown]
  - Diabetes mellitus inadequate control [Unknown]
